FAERS Safety Report 4450222-9 (Version None)
Quarter: 2004Q3

REPORT INFORMATION
  Report Type: 
  Country: None (occurrence: None)
  Receive Date: 20040914
  Receipt Date: 20040427
  Transmission Date: 20050211
  Serious: Yes (Hospitalization)
  Sender: FDA-Public Use
  Company Number: 2004219687JP

PATIENT
  Age: 66 Year
  Sex: Male

DRUGS (2)
  1. CAMPTOSAR [Suspect]
     Indication: GASTRIC CANCER
     Dosage: 80 MG/M2,CYCLIC , IV DRIP
     Route: 041
     Dates: start: 20040409, end: 20040427
  2. CISPLATIN [Suspect]
     Indication: GASTRIC CANCER
     Dosage: 40 MG, CYCLIC, IV DRIP
     Route: 041
     Dates: start: 20040409, end: 20040427

REACTIONS (8)
  - ANAPHYLACTOID REACTION [None]
  - CIRCULATORY COLLAPSE [None]
  - CYANOSIS [None]
  - DEPRESSED LEVEL OF CONSCIOUSNESS [None]
  - DRUG HYPERSENSITIVITY [None]
  - INCONTINENCE [None]
  - INFUSION RELATED REACTION [None]
  - STRIDOR [None]
